FAERS Safety Report 7392305-X (Version None)
Quarter: 2011Q2

REPORT INFORMATION
  Report Type: 
  Country: None (occurrence: None)
  Receive Date: 20110404
  Receipt Date: 20110330
  Transmission Date: 20111010
  Serious: Yes (Other)
  Sender: FDA-Public Use
  Company Number: US-PFIZER INC-2011071421

PATIENT
  Sex: Female
  Weight: 8.39 kg

DRUGS (7)
  1. PRILOSEC [Concomitant]
     Dosage: UNK
  2. GENOTROPIN [Suspect]
     Dosage: 0.4 MG, 1X/DAY
     Route: 058
     Dates: start: 20110330
  3. PRIMACOR [Concomitant]
     Dosage: UNK
  4. COARTEM [Concomitant]
     Dosage: UNK
  5. XOPENEX [Concomitant]
     Dosage: UNK
  6. GENOTROPIN [Suspect]
     Indication: PRADER-WILLI SYNDROME
     Dosage: 0.4 MG, 1X/DAY
     Route: 058
     Dates: start: 20110310, end: 20110316
  7. LEVOCARNITINE [Concomitant]
     Dosage: UNK

REACTIONS (1)
  - RESPIRATORY TRACT INFECTION [None]
